FAERS Safety Report 10704798 (Version 1)
Quarter: 2014Q4

REPORT INFORMATION
  Report Type: Spontaneous
  Country: NL (occurrence: NL)
  Receive Date: 20141113
  Receipt Date: 20141113
  Transmission Date: 20150529
  Serious: Yes (Other)
  Sender: FDA-Public Use
  Company Number: NL-APOTEX-2014AP005604

PATIENT
  Age: 5 Decade
  Sex: Male

DRUGS (2)
  1. METOPROLOL [Concomitant]
     Active Substance: METOPROLOL
     Indication: PRODUCT USED FOR UNKNOWN INDICATION
     Route: 065
  2. ATORVASTATIN [Suspect]
     Active Substance: ATORVASTATIN
     Indication: CARDIOVASCULAR DISORDER
     Dosage: 20 MG, UNK
     Route: 065

REACTIONS (5)
  - Hepatic enzyme abnormal [Recovered/Resolved]
  - Back pain [Recovered/Resolved]
  - Abnormal faeces [Recovered/Resolved]
  - Muscle rupture [Recovered/Resolved]
  - Myalgia [Recovered/Resolved]
